FAERS Safety Report 23530641 (Version 2)
Quarter: 2024Q1

REPORT INFORMATION
  Report Type: Other
  Country: US (occurrence: None)
  Receive Date: 20240216
  Receipt Date: 20240328
  Transmission Date: 20240410
  Serious: Yes (Hospitalization, Other)
  Sender: FDA-Public Use
  Company Number: US-ROCHE-3510228

PATIENT
  Age: 73 Year
  Sex: Female
  Weight: 81.72 kg

DRUGS (4)
  1. ZELBORAF [Suspect]
     Active Substance: VEMURAFENIB
     Indication: Histiocytosis
     Dosage: TAKE 2 TABLET(S) BY MOUTH TWICE A DAY
     Route: 048
  2. ZELBORAF [Suspect]
     Active Substance: VEMURAFENIB
     Indication: Erdheim-Chester disease
     Dosage: TAKE 2 TABLET(S) BY MOUTH TWICE A DAY
     Route: 048
     Dates: start: 202308
  3. ZELBORAF [Suspect]
     Active Substance: VEMURAFENIB
     Dosage: TAKE 2 TABLET(S) BY MOUTH TWICE A DAY
     Route: 048
     Dates: start: 202206, end: 202305
  4. PROTONIX [Concomitant]
     Active Substance: PANTOPRAZOLE SODIUM

REACTIONS (9)
  - Intestinal obstruction [Unknown]
  - Lower gastrointestinal haemorrhage [Recovered/Resolved]
  - Pancreatitis [Unknown]
  - Intracranial mass [Not Recovered/Not Resolved]
  - Gait inability [Recovering/Resolving]
  - Dysarthria [Recovering/Resolving]
  - Balance disorder [Not Recovered/Not Resolved]
  - Syncope [Unknown]
  - Polyp [Recovered/Resolved]

NARRATIVE: CASE EVENT DATE: 20230501
